FAERS Safety Report 8122882-2 (Version None)
Quarter: 2012Q1

REPORT INFORMATION
  Report Type: 
  Country: None (occurrence: None)
  Receive Date: 20120208
  Receipt Date: 20120201
  Transmission Date: 20120608
  Serious: Yes (Hospitalization)
  Sender: FDA-Public Use
  Company Number: US-ABBOTT-12P-163-0901120-00

PATIENT
  Sex: Female

DRUGS (1)
  1. SYNTHROID [Suspect]
     Indication: HYPOTHYROIDISM
     Dosage: ON AND OFF

REACTIONS (8)
  - BLOOD PRESSURE INCREASED [None]
  - TREMOR [None]
  - HYPERSENSITIVITY [None]
  - GASTROINTESTINAL DISORDER [None]
  - BLOOD CHOLESTEROL INCREASED [None]
  - MUSCLE SPASMS [None]
  - INSOMNIA [None]
  - PALPITATIONS [None]
